FAERS Safety Report 10042245 (Version 1)
Quarter: 2014Q1

REPORT INFORMATION
  Report Type: Spontaneous
  Country: US (occurrence: US)
  Receive Date: 20140327
  Receipt Date: 20140327
  Transmission Date: 20141002
  Serious: Yes (Hospitalization)
  Sender: FDA-Public Use
  Company Number: US-GLAXOSMITHKLINE-B0980145A

PATIENT
  Age: 55 Year
  Sex: Female

DRUGS (4)
  1. ELTROMBOPAG [Suspect]
     Indication: IMMUNE THROMBOCYTOPENIC PURPURA
     Dosage: 25MG PER DAY
     Route: 048
  2. PREDNISONE [Concomitant]
     Indication: IMMUNE THROMBOCYTOPENIC PURPURA
  3. IMMUNOGLOBULIN [Concomitant]
     Indication: IMMUNE THROMBOCYTOPENIC PURPURA
  4. ROMIPLOSTIM [Concomitant]
     Indication: IMMUNE THROMBOCYTOPENIC PURPURA
     Dosage: 250MCG WEEKLY
     Route: 065

REACTIONS (4)
  - Intracranial venous sinus thrombosis [Unknown]
  - Haemorrhagic infarction [Unknown]
  - Thrombosis [Unknown]
  - Intracranial haematoma [Unknown]
